FAERS Safety Report 9878768 (Version 1)
Quarter: 2014Q1

REPORT INFORMATION
  Report Type: Spontaneous
  Country: US (occurrence: US)
  Receive Date: 20140206
  Receipt Date: 20140206
  Transmission Date: 20141002
  Serious: Yes (Hospitalization)
  Sender: FDA-Public Use
  Company Number: US-GLAXOSMITHKLINE-A1059263A

PATIENT
  Age: 66 Year
  Sex: Male

DRUGS (3)
  1. ADVAIR [Suspect]
     Indication: CHRONIC OBSTRUCTIVE PULMONARY DISEASE
     Dosage: 1PUFF TWICE PER DAY
     Route: 065
  2. VENTOLIN [Suspect]
     Indication: CHRONIC OBSTRUCTIVE PULMONARY DISEASE
     Route: 065
  3. LASIX [Concomitant]

REACTIONS (4)
  - Lung neoplasm malignant [Not Recovered/Not Resolved]
  - Tracheal neoplasm [Not Recovered/Not Resolved]
  - Lymphatic system neoplasm [Not Recovered/Not Resolved]
  - Pneumonia [Unknown]
